FAERS Safety Report 7513435-5 (Version None)
Quarter: 2011Q2

REPORT INFORMATION
  Report Type: 
  Country: None (occurrence: None)
  Receive Date: 20110531
  Receipt Date: 20110406
  Transmission Date: 20111010
  Serious: Yes (Other)
  Sender: FDA-Public Use
  Company Number: US-BAYER-201039323NA

PATIENT
  Age: 26 Year
  Sex: Female
  Weight: 81.633 kg

DRUGS (5)
  1. PROPOXYPHENE HCL AND ACETAMINOPHEN [Concomitant]
     Dosage: UNK
     Dates: start: 20080727
  2. VICODIN [Concomitant]
  3. YASMIN [Suspect]
     Indication: CONTRACEPTION
     Dosage: UNK
     Dates: start: 20020101, end: 20060101
  4. YASMIN [Suspect]
     Dosage: UNK
     Dates: start: 20070101, end: 20090101
  5. BELLADONNA-PHENOBARB ELIXIR [Concomitant]
     Dosage: UNK
     Dates: start: 20080727

REACTIONS (3)
  - CHOLECYSTITIS CHRONIC [None]
  - GALLBLADDER INJURY [None]
  - CHOLELITHIASIS [None]
